FAERS Safety Report 4801990-5 (Version None)
Quarter: 2005Q4

REPORT INFORMATION
  Report Type: 
  Country: None (occurrence: None)
  Receive Date: 20051014
  Receipt Date: 20051014
  Transmission Date: 20060501
  Serious: Yes (Other)
  Sender: FDA-Public Use
  Company Number: None

PATIENT
  Age: 38 Year
  Sex: Female
  Weight: 79.3795 kg

DRUGS (1)
  1. ISOVUE-370 [Suspect]
     Dosage: 120 CC I.C.

REACTIONS (2)
  - PHARYNGEAL ERYTHEMA [None]
  - RASH GENERALISED [None]
